FAERS Safety Report 8524809-8 (Version None)
Quarter: 2012Q3

REPORT INFORMATION
  Report Type: 
  Country: None (occurrence: None)
  Receive Date: 20120720
  Receipt Date: 20120712
  Transmission Date: 20120928
  Serious: Yes (Death, Hospitalization, Congenital Anomaly)
  Sender: FDA-Public Use
  Company Number: US-GLAXOSMITHKLINE-A0985295A

PATIENT
  Sex: Male
  Weight: 3.4 kg

DRUGS (3)
  1. PAXIL [Suspect]
     Indication: PRODUCT USED FOR UNKNOWN INDICATION
     Route: 064
  2. WELLBUTRIN [Concomitant]
  3. PROZAC [Concomitant]

REACTIONS (9)
  - PATENT DUCTUS ARTERIOSUS [None]
  - METABOLIC ACIDOSIS [None]
  - DISSEMINATED INTRAVASCULAR COAGULATION [None]
  - MULTI-ORGAN FAILURE [None]
  - HYPERKALAEMIA [None]
  - DEATH [None]
  - CONVULSION [None]
  - FOETAL EXPOSURE DURING PREGNANCY [None]
  - ATRIAL SEPTAL DEFECT [None]
